FAERS Safety Report 23714941 (Version 2)
Quarter: 2024Q2

REPORT INFORMATION
  Report Type: Report from Study
  Country: CO (occurrence: CO)
  Receive Date: 20240406
  Receipt Date: 20240510
  Transmission Date: 20240716
  Serious: Yes (Life-Threatening)
  Sender: FDA-Public Use
  Company Number: CO-002147023-NVSC2024CO072634

PATIENT
  Sex: Male
  Weight: 94 kg

DRUGS (2)
  1. COSENTYX [Suspect]
     Active Substance: SECUKINUMAB
     Indication: Psoriasis
     Dosage: 300 MG, QMO
     Route: 058
     Dates: start: 20231027
  2. COSENTYX [Suspect]
     Active Substance: SECUKINUMAB
     Dosage: UNK
     Route: 065
     Dates: start: 202402

REACTIONS (5)
  - Feeling abnormal [Unknown]
  - Vertigo [Unknown]
  - COVID-19 [Unknown]
  - Malaise [Unknown]
  - Liver disorder [Unknown]
